FAERS Safety Report 24297092 (Version 2)
Quarter: 2024Q4

REPORT INFORMATION
  Report Type: Spontaneous
  Country: DE (occurrence: DE)
  Receive Date: 20240909
  Receipt Date: 20241009
  Transmission Date: 20250115
  Serious: Yes (Other)
  Sender: AUROBINDO
  Company Number: DE-BRISTOL-MYERS SQUIBB COMPANY-2024-132700

PATIENT
  Age: 64 Year
  Sex: Male
  Weight: 71 kg

DRUGS (15)
  1. CARBOPLATIN [Suspect]
     Active Substance: CARBOPLATIN
     Indication: Non-small cell lung cancer
     Dosage: DOSE: 5 UNIT AUC-MG/MIN ML
     Route: 042
     Dates: start: 20240411
  2. CARBOPLATIN [Suspect]
     Active Substance: CARBOPLATIN
     Dosage: DOSE: 5 UNIT AUC-MG/MIN ML
     Route: 042
     Dates: start: 20240528
  3. CARBOPLATIN [Suspect]
     Active Substance: CARBOPLATIN
     Dosage: DOSE: 5 UNIT AUC-MG/MIN ML
     Route: 042
     Dates: start: 20240502
  4. CARBOPLATIN [Suspect]
     Active Substance: CARBOPLATIN
     Dosage: DOSE: 5 UNIT AUC-MG/MIN ML
     Route: 042
     Dates: start: 20240514
  5. CARBOPLATIN [Suspect]
     Active Substance: CARBOPLATIN
     Dosage: DOSE: 5 UNIT AUC-MG/MIN ML
     Route: 042
     Dates: start: 20240521
  6. PACLITAXEL [Suspect]
     Active Substance: PACLITAXEL
     Indication: Non-small cell lung cancer
     Dosage: 100 MILLIGRAM/SQ. METER
     Route: 042
     Dates: start: 20240418
  7. PACLITAXEL [Suspect]
     Active Substance: PACLITAXEL
     Dosage: 100 MILLIGRAM/SQ. METER
     Route: 042
     Dates: start: 20240425
  8. PACLITAXEL [Suspect]
     Active Substance: PACLITAXEL
     Dosage: 100 MILLIGRAM/SQ. METER
     Route: 042
     Dates: start: 20240514
  9. PACLITAXEL [Suspect]
     Active Substance: PACLITAXEL
     Dosage: 100 MILLIGRAM/SQ. METER
     Route: 042
     Dates: start: 20240604
  10. PACLITAXEL [Suspect]
     Active Substance: PACLITAXEL
     Dosage: 100 MILLIGRAM/SQ. METER
     Route: 042
     Dates: start: 20240613
  11. PACLITAXEL [Suspect]
     Active Substance: PACLITAXEL
     Dosage: 100 MILLIGRAM/SQ. METER
     Route: 042
     Dates: start: 20240411
  12. PACLITAXEL [Suspect]
     Active Substance: PACLITAXEL
     Dosage: 100 MILLIGRAM/SQ. METER
     Route: 042
     Dates: start: 20240502
  13. PACLITAXEL [Suspect]
     Active Substance: PACLITAXEL
     Dosage: 100 MILLIGRAM/SQ. METER
     Route: 042
     Dates: start: 20240521
  14. PACLITAXEL [Suspect]
     Active Substance: PACLITAXEL
     Dosage: 100 MILLIGRAM/SQ. METER
     Route: 042
     Dates: start: 20240528
  15. NIVOLUMAB [Suspect]
     Active Substance: NIVOLUMAB
     Indication: Non-small cell lung cancer
     Dosage: 360 MILLIGRAM, EVERY 21 DAYS (FREQUENCY: 21 DAYS/CYCLE FOR 3 CYCLES)
     Route: 042
     Dates: start: 20240411, end: 20240528

REACTIONS (1)
  - Autoimmune thyroiditis [Recovered/Resolved with Sequelae]

NARRATIVE: CASE EVENT DATE: 20240715
